FAERS Safety Report 6604386-9 (Version None)
Quarter: 2010Q1

REPORT INFORMATION
  Report Type: 
  Country: None (occurrence: None)
  Receive Date: 20100226
  Receipt Date: 20090910
  Transmission Date: 20100710
  Serious: No
  Sender: FDA-Public Use
  Company Number: A0807502A

PATIENT
  Age: 57 Year
  Sex: Male

DRUGS (6)
  1. LAMICTAL CD [Suspect]
     Dosage: 50MG PER DAY
     Route: 048
     Dates: start: 20090501
  2. BUPROPION HCL [Concomitant]
  3. VYVANSE [Concomitant]
  4. HYDROMORPHONE HYDROCHLORIDE [Concomitant]
  5. OXYCONTIN [Concomitant]
  6. FLOMAX [Concomitant]

REACTIONS (1)
  - PRURITUS [None]
